FAERS Safety Report 8709788 (Version 2)
Quarter: 2012Q4

REPORT INFORMATION
  Report Type: 
  Country: JP (occurrence: JP)
  Receive Date: 20120806
  Receipt Date: 20121123
  Transmission Date: 20130627
  Serious: Yes (Hospitalization)
  Sender: FDA-Public Use
  Company Number: JP-009507513-1208JPN002030

PATIENT
  Age: 60 Year
  Sex: Female
  Weight: 59 kg

DRUGS (5)
  1. PEGINTRON [Suspect]
     Indication: CHRONIC HEPATITIS C
     Dosage: 1.5 Microgram per kilogram,qw
     Route: 058
     Dates: start: 20120316, end: 20120413
  2. REBETOL [Suspect]
     Indication: CHRONIC HEPATITIS C
     Dosage: 400 mg
     Route: 048
     Dates: start: 20120316, end: 20120417
  3. TELAVIC [Suspect]
     Indication: CHRONIC HEPATITIS C
     Dosage: 1500 mg, qd
     Route: 048
     Dates: start: 20120316, end: 20120417
  4. URSO [Concomitant]
     Indication: CHRONIC HEPATITIS C
     Dosage: 900 mg qd
     Route: 048
     Dates: start: 20071205
  5. MYSLEE [Concomitant]
     Indication: INSOMNIA
     Dosage: 5 mg qd
     Route: 048

REACTIONS (9)
  - Pyelonephritis acute [Recovered/Resolved]
  - Sepsis [Recovered/Resolved]
  - Metabolic acidosis [Recovered/Resolved]
  - Drug eruption [None]
  - Neutrophil count decreased [None]
  - Depressed level of consciousness [None]
  - Therapeutic response decreased [None]
  - Infection susceptibility increased [None]
  - General physical health deterioration [None]
